FAERS Safety Report 20957861 (Version 5)
Quarter: 2023Q2

REPORT INFORMATION
  Report Type: Report from Study
  Country: CN (occurrence: None)
  Receive Date: 20220614
  Receipt Date: 20230427
  Transmission Date: 20230722
  Serious: Yes (Hospitalization)
  Sender: FDA-Public Use
  Company Number: CN-ROCHE-2897863

PATIENT
  Age: 73 Year
  Sex: Male
  Weight: 58 kg

DRUGS (40)
  1. TIRAGOLUMAB [Suspect]
     Active Substance: TIRAGOLUMAB
     Indication: Small cell lung cancer extensive stage
     Dosage: ON 12/AUG/2021, RECEIVED MOST RECENT DOSE OF TIRAGOLUMAB PRIOR TO AE AND SAE.
     Route: 042
     Dates: start: 20210608
  2. ATEZOLIZUMAB [Suspect]
     Active Substance: ATEZOLIZUMAB
     Indication: Small cell lung cancer extensive stage
     Dosage: DOSE LAST STUDY DRUG ADMIN PRIOR AE/SAE WAS 1200 MG.?ON 12/AUG/2021,07/MAY/2022 RECEIVED MOST RECENT
     Route: 041
     Dates: start: 20210608
  3. CARBOPLATIN [Suspect]
     Active Substance: CARBOPLATIN
     Indication: Small cell lung cancer extensive stage
     Dosage: DOSE LAST STUDY DRUG ADMIN PRIOR AE/SAE WAS 421 MG. ?ON 12/AUG/2021, RECEIVED MOST RECENT DOSE OF CA
     Route: 042
     Dates: start: 20210608
  4. ETOPOSIDE [Suspect]
     Active Substance: ETOPOSIDE
     Indication: Small cell lung cancer extensive stage
     Dosage: DOSE LAST STUDY DRUG ADMIN PRIOR AE/SAE WAS 160 MG. FREQUENCY WAS OTHER?ON 14/AUG/2021, RECEIVED MOS
     Route: 042
     Dates: start: 20210608
  5. OMEPRAZOLE SODIUM [Concomitant]
     Active Substance: OMEPRAZOLE SODIUM
     Dosage: OMEPRAZOLE SODIUM FOR INJECTION
     Route: 042
     Dates: start: 20210722, end: 20210724
  6. OMEPRAZOLE SODIUM [Concomitant]
     Active Substance: OMEPRAZOLE SODIUM
     Dosage: OMEPRAZOLE SODIUM FOR INJECTION
     Route: 042
     Dates: start: 20210812, end: 20210815
  7. NADROPARIN CALCIUM [Concomitant]
     Active Substance: NADROPARIN CALCIUM
     Dosage: NADROPARIN CALCIUM FOR INJECTION
     Route: 058
     Dates: start: 20210812, end: 20210812
  8. FUROSEMIDE [Concomitant]
     Active Substance: FUROSEMIDE
     Route: 042
     Dates: start: 20210812, end: 20210812
  9. FUROSEMIDE [Concomitant]
     Active Substance: FUROSEMIDE
     Route: 042
     Dates: start: 20210722, end: 20210722
  10. METOCLOPRAMIDE HYDROCHLORIDE [Concomitant]
     Active Substance: METOCLOPRAMIDE HYDROCHLORIDE
     Route: 042
     Dates: start: 20210812, end: 20210815
  11. DESLORATADINE [Concomitant]
     Active Substance: DESLORATADINE
     Route: 048
     Dates: start: 20210721, end: 20210724
  12. DOLASETRON MESYLATE [Concomitant]
     Active Substance: DOLASETRON MESYLATE
     Route: 042
     Dates: start: 20210722, end: 20210724
  13. PALONOSETRON HYDROCHLORIDE [Concomitant]
     Active Substance: PALONOSETRON HYDROCHLORIDE
     Route: 042
     Dates: start: 20210812, end: 20210815
  14. DI YU SHENG BAI [Concomitant]
     Dosage: 4 TABLET
     Route: 048
     Dates: start: 20210725, end: 20210729
  15. DI YU SHENG BAI [Concomitant]
     Dosage: 4 TABLET
     Route: 048
     Dates: start: 20210730, end: 20210810
  16. OPRELVEKIN [Concomitant]
     Active Substance: OPRELVEKIN
     Route: 058
     Dates: start: 20210822, end: 20210822
  17. OPRELVEKIN [Concomitant]
     Active Substance: OPRELVEKIN
     Route: 058
     Dates: start: 20210820, end: 20210820
  18. OPRELVEKIN [Concomitant]
     Active Substance: OPRELVEKIN
     Route: 058
     Dates: start: 20210810, end: 20210811
  19. THROMBOPOIETIN [Concomitant]
     Active Substance: THROMBOPOIETIN
     Route: 058
     Dates: start: 20210824, end: 20210828
  20. THROMBOPOIETIN [Concomitant]
     Active Substance: THROMBOPOIETIN
     Route: 058
     Dates: start: 20210820, end: 20210820
  21. THROMBOPOIETIN [Concomitant]
     Active Substance: THROMBOPOIETIN
     Route: 058
     Dates: start: 20210822, end: 20210822
  22. THROMBOPOIETIN [Concomitant]
     Active Substance: THROMBOPOIETIN
     Route: 058
     Dates: start: 20210823, end: 20210825
  23. AMBROXOL HYDROCHLORIDE [Concomitant]
     Active Substance: AMBROXOL HYDROCHLORIDE
     Indication: Productive cough
     Route: 042
     Dates: start: 20210825, end: 20210827
  24. MEGESTROL ACETATE [Concomitant]
     Active Substance: MEGESTROL ACETATE
     Route: 048
     Dates: start: 20220616, end: 20220701
  25. MEGESTROL ACETATE [Concomitant]
     Active Substance: MEGESTROL ACETATE
     Route: 048
     Dates: start: 20220706, end: 20220805
  26. HYDROXYETHYL STARCH 40 SODIUM CHLORIDE [Concomitant]
     Dates: start: 20220422, end: 20220422
  27. AMINO ACIDS, SOURCE UNSPECIFIED [Concomitant]
     Active Substance: AMINO ACIDS, SOURCE UNSPECIFIED
     Dates: start: 20220422, end: 20220422
  28. AMINO ACIDS, SOURCE UNSPECIFIED [Concomitant]
     Active Substance: AMINO ACIDS, SOURCE UNSPECIFIED
     Route: 042
     Dates: start: 20220512, end: 20220515
  29. AMINO ACIDS, SOURCE UNSPECIFIED [Concomitant]
     Active Substance: AMINO ACIDS, SOURCE UNSPECIFIED
     Route: 042
     Dates: start: 20220704, end: 20220708
  30. MONTMORILLONITE [Concomitant]
     Active Substance: MONTMORILLONITE
     Indication: Diarrhoea
     Dates: start: 20220422, end: 20220425
  31. MONTMORILLONITE [Concomitant]
     Active Substance: MONTMORILLONITE
     Route: 048
     Dates: start: 20220706, end: 20220708
  32. BUDESONIDE [Concomitant]
     Active Substance: BUDESONIDE
  33. OMEPRAZOLE [Concomitant]
     Active Substance: OMEPRAZOLE
     Route: 042
     Dates: start: 20220512, end: 20220515
  34. COMPOUND AZINTAMIDE [Concomitant]
     Route: 048
     Dates: start: 20220512, end: 20220516
  35. ALANYL GLUTAMINE [Concomitant]
     Active Substance: ALANYL GLUTAMINE
     Route: 042
     Dates: start: 20220512, end: 20220515
  36. ALANYL GLUTAMINE [Concomitant]
     Active Substance: ALANYL GLUTAMINE
     Route: 042
     Dates: start: 20220704, end: 20220707
  37. OLOPATADINE HYDROCHLORIDE [Concomitant]
     Active Substance: OLOPATADINE HYDROCHLORIDE
     Dates: start: 20220526
  38. POTASSIUM CHLORIDE [Concomitant]
     Active Substance: POTASSIUM CHLORIDE
     Dates: start: 20220704, end: 20220705
  39. POTASSIUM CHLORIDE [Concomitant]
     Active Substance: POTASSIUM CHLORIDE
     Dates: start: 20220422, end: 20220427
  40. BACILLUS LICHENIFORMIS CAPSULE,LIVE [Concomitant]
     Route: 048
     Dates: start: 20220706, end: 20220710

REACTIONS (4)
  - Myelosuppression [Recovered/Resolved]
  - Gastritis [Not Recovered/Not Resolved]
  - Febrile neutropenia [Recovered/Resolved]
  - Pneumonitis [Recovered/Resolved]

NARRATIVE: CASE EVENT DATE: 20210820
